FAERS Safety Report 5779072-8 (Version None)
Quarter: 2008Q2

REPORT INFORMATION
  Report Type: 
  Country: None (occurrence: None)
  Receive Date: 20080613
  Receipt Date: 20071212
  Transmission Date: 20081010
  Serious: Yes (Hospitalization)
  Sender: FDA-Public Use
  Company Number: PHEH2007US15770

PATIENT
  Age: 76 Year
  Sex: Female
  Weight: 77.1 kg

DRUGS (2)
  1. EXELON [Suspect]
     Indication: DEMENTIA ALZHEIMER'S TYPE
     Dosage: 1.5 MG, BID
     Dates: start: 20071012
  2. EXELON [Concomitant]

REACTIONS (1)
  - PANCREATITIS ACUTE [None]
